FAERS Safety Report 16834210 (Version 1)
Quarter: 2019Q3

REPORT INFORMATION
  Report Type: Spontaneous
  Country: GB (occurrence: GB)
  Receive Date: 20190920
  Receipt Date: 20190920
  Transmission Date: 20191005
  Serious: Yes (Other)
  Sender: FDA-Public Use
  Company Number: GB-PFIZER INC-2019400265

PATIENT
  Age: 21 Year
  Sex: Female
  Weight: 45.36 kg

DRUGS (1)
  1. DOXYCYCLINE HYCLATE. [Suspect]
     Active Substance: DOXYCYCLINE HYCLATE
     Indication: MALARIA PROPHYLAXIS
     Dosage: 100 MG, UNK
     Route: 048
     Dates: start: 20190623, end: 20190827

REACTIONS (2)
  - Photosensitivity reaction [Unknown]
  - Photoonycholysis [Not Recovered/Not Resolved]

NARRATIVE: CASE EVENT DATE: 20190815
